FAERS Safety Report 7740306-1 (Version None)
Quarter: 2011Q3

REPORT INFORMATION
  Report Type: 
  Country: None (occurrence: None)
  Receive Date: 20110909
  Receipt Date: 20110903
  Transmission Date: 20111222
  Serious: Yes (Life-Threatening, Hospitalization)
  Sender: FDA-Public Use
  Company Number: US-ROCHE-801383

PATIENT
  Age: 66 Year
  Sex: Female
  Weight: 72.4 kg

DRUGS (3)
  1. VINORELBINE [Suspect]
     Indication: NON-SMALL CELL LUNG CANCER
     Dosage: OVER 10 MIN ON DAYS 1 AND 8
     Route: 042
     Dates: start: 20110719
  2. BEVACIZUMAB [Suspect]
     Indication: NON-SMALL CELL LUNG CANCER
     Dosage: OVER 30-90 MIN ON DAY 1
     Route: 042
     Dates: start: 20110719
  3. CISPLATIN [Suspect]
     Indication: NON-SMALL CELL LUNG CANCER
     Dosage: OVER 60 MIN ON DAY 1
     Route: 042
     Dates: start: 20110719

REACTIONS (14)
  - GRANULOCYTE COUNT DECREASED [None]
  - PLATELET COUNT DECREASED [None]
  - MYOCARDIAL INFARCTION [None]
  - CARDIO-RESPIRATORY ARREST [None]
  - ASTHENIA [None]
  - BLOOD CREATINE INCREASED [None]
  - NEUTROPHIL COUNT DECREASED [None]
  - VOMITING [None]
  - MALAISE [None]
  - NAUSEA [None]
  - HAEMOGLOBIN DECREASED [None]
  - MYOCARDIAL ISCHAEMIA [None]
  - FATIGUE [None]
  - LETHARGY [None]
